FAERS Safety Report 10109156 (Version 2)
Quarter: 2014Q2

REPORT INFORMATION
  Report Type: Spontaneous
  Country: US (occurrence: US)
  Receive Date: 20140425
  Receipt Date: 20140425
  Transmission Date: 20141212
  Serious: Yes (Death, Other)
  Sender: FDA-Public Use
  Company Number: US-PURDUE-USA-2014-0112874

PATIENT
  Sex: Male

DRUGS (2)
  1. OXYCODONE HYDROCHLORIDE (SIMILAR TO NDA 22-272) [Suspect]
     Indication: FOETAL EXPOSURE DURING PREGNANCY
  2. MARIJUANA [Suspect]
     Indication: FOETAL EXPOSURE DURING PREGNANCY

REACTIONS (4)
  - Victim of homicide [Fatal]
  - Pneumonia [Unknown]
  - Low birth weight baby [Unknown]
  - Foetal exposure during pregnancy [Unknown]
